FAERS Safety Report 10040324 (Version 2)
Quarter: 2014Q2

REPORT INFORMATION
  Report Type: Spontaneous
  Country: SK (occurrence: SK)
  Receive Date: 20140327
  Receipt Date: 20140515
  Transmission Date: 20141212
  Serious: Yes (Death, Hospitalization)
  Sender: FDA-Public Use
  Company Number: SK-B.I. PHARMACEUTICALS,INC./RIDGEFIELD-2014-BI-12546GD

PATIENT
  Age: 92 Year
  Sex: Female

DRUGS (1)
  1. PRADAXA [Suspect]
     Indication: PRODUCT USED FOR UNKNOWN INDICATION
     Dosage: 220 MG
     Route: 065
     Dates: start: 20121020

REACTIONS (10)
  - Cardiopulmonary failure [Fatal]
  - Fall [Unknown]
  - Humerus fracture [Unknown]
  - Somnolence [Unknown]
  - Disorientation [Unknown]
  - Hypocoagulable state [Unknown]
  - Anaemia [Unknown]
  - Pelvic haematoma [Unknown]
  - Pelvic fracture [Unknown]
  - Hypercreatinaemia [Unknown]
